FAERS Safety Report 13267204 (Version 1)
Quarter: 2017Q1

REPORT INFORMATION
  Report Type: Spontaneous
  Country: US (occurrence: US)
  Receive Date: 20170224
  Receipt Date: 20170224
  Transmission Date: 20170428
  Serious: Yes (Other)
  Sender: FDA-Public Use
  Company Number: US-ASTRAZENECA-2017SE18861

PATIENT
  Age: 63 Year
  Sex: Female

DRUGS (1)
  1. SEROQUEL XR [Suspect]
     Active Substance: QUETIAPINE FUMARATE
     Route: 048

REACTIONS (7)
  - Cardiac failure [Unknown]
  - Tardive dyskinesia [Unknown]
  - Seizure [Unknown]
  - Fall [Unknown]
  - Cataract [Unknown]
  - Eye injury [Unknown]
  - Product use issue [Unknown]
